FAERS Safety Report 6407932-3 (Version None)
Quarter: 2009Q4

REPORT INFORMATION
  Report Type: 
  Country: None (occurrence: None)
  Receive Date: 20091016
  Receipt Date: 20091008
  Transmission Date: 20100525
  Serious: Yes (Other)
  Sender: FDA-Public Use
  Company Number: WAES 0910USA01303

PATIENT
  Age: 39 Year
  Sex: Male

DRUGS (6)
  1. TAB MK-0518 (RALTEGRAVIR POTASSIUM) [Suspect]
     Indication: HIV INFECTION
     Dosage: 400 MG/BID PO
     Route: 048
     Dates: start: 20090820
  2. ALUVIA [Concomitant]
  3. AMITRIPTYLINE HCL [Concomitant]
  4. AUGMENTIN [Concomitant]
  5. DILINCT [Concomitant]
  6. LAMIVUDINE + ZIDOVUDINE [Concomitant]

REACTIONS (6)
  - DEAFNESS NEUROSENSORY [None]
  - DIARRHOEA [None]
  - DIZZINESS [None]
  - DYSSTASIA [None]
  - NEUROPATHY PERIPHERAL [None]
  - UPPER RESPIRATORY TRACT INFECTION [None]
